FAERS Safety Report 17959221 (Version 1)
Quarter: 2020Q2

REPORT INFORMATION
  Report Type: Report from Study
  Country: US (occurrence: US)
  Receive Date: 20200629
  Receipt Date: 20200629
  Transmission Date: 20200714
  Serious: Yes (Hospitalization)
  Sender: FDA-Public Use
  Company Number: US-ELI_LILLY_AND_COMPANY-US202006010187

PATIENT
  Sex: Male
  Weight: 92.06 kg

DRUGS (4)
  1. OLANZAPINE PAMOATE [Suspect]
     Active Substance: OLANZAPINE PAMOATE
     Indication: SCHIZOPHRENIA
     Dosage: 300 MG, OTHER (BI-WEEKLY)
     Route: 030
     Dates: start: 20200102
  2. OLANZAPINE PAMOATE [Suspect]
     Active Substance: OLANZAPINE PAMOATE
     Dosage: 300 MG, OTHER (BI-WEEKLY)
     Route: 030
     Dates: start: 20200409
  3. OLANZAPINE PAMOATE [Suspect]
     Active Substance: OLANZAPINE PAMOATE
     Dosage: 300 MG, OTHER (BI-WEEKLY)
     Route: 030
     Dates: start: 20200618
  4. OLANZAPINE PAMOATE [Suspect]
     Active Substance: OLANZAPINE PAMOATE
     Dosage: 210 MG, OTHER (BI-WEEKLY)
     Route: 042
     Dates: start: 20200227

REACTIONS (13)
  - Confusional state [Recovered/Resolved]
  - Depressed level of consciousness [Recovered/Resolved]
  - Urinary incontinence [Recovered/Resolved]
  - Dizziness [Recovered/Resolved]
  - Anxiety [Recovered/Resolved]
  - Tachycardia [Recovered/Resolved]
  - Asthenia [Recovered/Resolved]
  - Drooling [Recovered/Resolved]
  - Hypertension [Recovered/Resolved]
  - Sedation [Recovered/Resolved]
  - Ataxia [Recovered/Resolved]
  - Post-injection delirium sedation syndrome [Recovered/Resolved]
  - Disorientation [Recovered/Resolved]

NARRATIVE: CASE EVENT DATE: 20200618
